FAERS Safety Report 9971636 (Version 1)
Quarter: 2014Q1

REPORT INFORMATION
  Report Type: Spontaneous
  Country: DE (occurrence: None)
  Receive Date: 20140304
  Receipt Date: 20140304
  Transmission Date: 20141002
  Serious: Yes (Other)
  Sender: FDA-Public Use
  Company Number: AUR-APL-2014-02108

PATIENT
  Age: 66 Year
  Sex: Female

DRUGS (2)
  1. RIBAVIRIN (RIBAVIRIN) [Suspect]
     Indication: HEPATITIS C
  2. PEGINTERFERON (PEGINTERFERON) [Suspect]
     Indication: HEPATITIS C

REACTIONS (5)
  - H1N1 influenza [None]
  - Klebsiella infection [None]
  - Urinary tract infection bacterial [None]
  - Oral herpes [None]
  - Cytomegalovirus enteritis [None]
